FAERS Safety Report 8969683 (Version 1)
Quarter: 2012Q4

REPORT INFORMATION
  Report Type: 
  Country: US (occurrence: US)
  Receive Date: 20121218
  Receipt Date: 20121218
  Transmission Date: 20130627
  Serious: Yes (Hospitalization)
  Sender: FDA-Public Use
  Company Number: US-AMGEN-USASP2012080067

PATIENT
  Sex: Female

DRUGS (1)
  1. ENBREL [Suspect]
     Indication: RHEUMATOID ARTHRITIS
     Dosage: 50 mg, weekly
     Dates: start: 2004

REACTIONS (11)
  - Cardiac pacemaker insertion [Recovered/Resolved]
  - Heart rate abnormal [Recovered/Resolved]
  - Tibia fracture [Recovered/Resolved]
  - Fibula fracture [Recovered/Resolved]
  - Ankle fracture [Recovered/Resolved]
  - Impaired healing [Recovered/Resolved]
  - Walking aid user [Not Recovered/Not Resolved]
  - Wheelchair user [Not Recovered/Not Resolved]
  - Finger deformity [Not Recovered/Not Resolved]
  - Gout [Recovered/Resolved]
  - Pain [Not Recovered/Not Resolved]
